FAERS Safety Report 23092825 (Version 1)
Quarter: 2023Q4

REPORT INFORMATION
  Report Type: Spontaneous
  Country: DE (occurrence: DE)
  Receive Date: 20231021
  Receipt Date: 20231021
  Transmission Date: 20240109
  Serious: Yes (Congenital Anomaly)
  Sender: FDA-Public Use
  Company Number: DE-EMA-DD-20190905-bhardwaj_r-163148

PATIENT

DRUGS (1)
  1. LEVETIRACETAM [Suspect]
     Active Substance: LEVETIRACETAM
     Indication: Product used for unknown indication
     Dosage: DAILY DOSE:4000 MG
     Route: 064
     Dates: end: 201111

REACTIONS (2)
  - Urinary tract malformation [Unknown]
  - Maternal exposure during pregnancy [Unknown]
